FAERS Safety Report 4716786-2 (Version None)
Quarter: 2005Q3

REPORT INFORMATION
  Report Type: 
  Country: None (occurrence: None)
  Receive Date: 20050719
  Receipt Date: 20050606
  Transmission Date: 20060218
  Serious: Yes (Hospitalization)
  Sender: FDA-Public Use
  Company Number: DE-AMGEN-UK137320

PATIENT
  Sex: Female
  Weight: 74 kg

DRUGS (11)
  1. NEULASTA [Suspect]
     Indication: PERIPHERAL BLOOD STEM CELL APHERESIS
     Route: 058
     Dates: start: 20050330
  2. PIPERACILLIN/TAZOBACTAM [Concomitant]
     Route: 065
     Dates: start: 20050526
  3. ZOVIRAX [Concomitant]
     Route: 065
  4. MELPHALAN [Concomitant]
     Route: 065
     Dates: start: 20050517, end: 20050518
  5. TPN [Concomitant]
     Route: 051
     Dates: start: 20050526, end: 20050603
  6. CYCLOPHOSPHAMIDE [Concomitant]
     Route: 042
     Dates: start: 20050324, end: 20050326
  7. FAMVIR [Concomitant]
     Route: 065
  8. CONCOR [Concomitant]
     Route: 065
  9. DELIX [Concomitant]
     Route: 065
  10. SPIRIVA [Concomitant]
     Route: 065
  11. L-THYROXIN [Concomitant]
     Route: 065

REACTIONS (4)
  - MUCOSAL INFLAMMATION [None]
  - PYREXIA [None]
  - SPLENIC RUPTURE [None]
  - STAPHYLOCOCCAL INFECTION [None]
